FAERS Safety Report 9105266 (Version 10)
Quarter: 2015Q2

REPORT INFORMATION
  Report Type: Spontaneous
  Country: US (occurrence: US)
  Receive Date: 20130220
  Receipt Date: 20150428
  Transmission Date: 20150821
  Serious: Yes (Hospitalization, Other)
  Sender: FDA-Public Use
  Company Number: US-GLAXOSMITHKLINE-A1011461A

PATIENT
  Age: 47 Year
  Sex: Female

DRUGS (11)
  1. FLOLAN [Suspect]
     Active Substance: EPOPROSTENOL SODIUM
     Dosage: UNK
     Dates: start: 20110924
  2. FLOLAN [Suspect]
     Active Substance: EPOPROSTENOL SODIUM
     Dosage: 25 NG/KG/MIN
  3. TRACLEER [Concomitant]
     Active Substance: BOSENTAN\BOSENTAN MONOHYDRATE
     Route: 048
  4. OPSUMIT [Concomitant]
     Active Substance: MACITENTAN
  5. FLOLAN [Suspect]
     Active Substance: EPOPROSTENOL SODIUM
     Indication: PULMONARY ARTERIAL HYPERTENSION
     Dosage: 23 NG/KG/MIN CONTINUOUSLYDOSE: 23.4 NG/KG/MIN, CONC: 30,000 NG/MLVIAL STRENGTH: 1.5 MG23.5 NG/K[...]
     Route: 042
     Dates: start: 20110923
  6. FLOLAN [Suspect]
     Active Substance: EPOPROSTENOL SODIUM
     Dosage: UNK
     Dates: start: 20110924
  7. FLOLAN [Suspect]
     Active Substance: EPOPROSTENOL SODIUM
     Dosage: UNK
     Dates: start: 20110924
  8. FLOLAN [Suspect]
     Active Substance: EPOPROSTENOL SODIUM
     Dosage: 24.7 NG/KG/MIN
     Route: 042
  9. REVATIO [Concomitant]
     Active Substance: SILDENAFIL CITRATE
     Route: 048
  10. FLOLAN [Suspect]
     Active Substance: EPOPROSTENOL SODIUM
     Dosage: UNK
     Dates: start: 20110924
  11. FLOLAN [Suspect]
     Active Substance: EPOPROSTENOL SODIUM
     Dosage: 23.5 NG/KG/MIN CONTINUOUS

REACTIONS (15)
  - Flushing [Unknown]
  - Feeling hot [Unknown]
  - Device leakage [Unknown]
  - Catheter site swelling [Not Recovered/Not Resolved]
  - Upper respiratory tract infection [Unknown]
  - Medical device complication [Unknown]
  - Pulmonary hypertension [Unknown]
  - Catheter site erythema [Not Recovered/Not Resolved]
  - Drug administration error [Unknown]
  - Pulmonary arterial hypertension [Unknown]
  - Catheter site pain [Not Recovered/Not Resolved]
  - Catheter site infection [Not Recovered/Not Resolved]
  - Device related infection [Recovered/Resolved]
  - Pyrexia [Unknown]
  - Palpitations [Unknown]

NARRATIVE: CASE EVENT DATE: 20130123
